FAERS Safety Report 5729405-3 (Version None)
Quarter: 2008Q2

REPORT INFORMATION
  Report Type: 
  Country: None (occurrence: None)
  Receive Date: 20080506
  Receipt Date: 20080428
  Transmission Date: 20081010
  Serious: Yes (Death, Life-Threatening, Hospitalization)
  Sender: FDA-Public Use
  Company Number: FR-GENENTECH-246106

PATIENT
  Sex: Male
  Weight: 97 kg

DRUGS (17)
  1. BEVACIZUMAB [Suspect]
     Indication: NON-SMALL CELL LUNG CANCER
     Dosage: 1450 MG, Q3W
     Route: 042
     Dates: start: 20070729, end: 20070802
  2. CISPLATIN [Suspect]
     Indication: NON-SMALL CELL LUNG CANCER
     Dosage: 150 MG, UNK
     Route: 042
     Dates: start: 20070727, end: 20070802
  3. TAXOTERE [Suspect]
     Indication: NON-SMALL CELL LUNG CANCER
     Dosage: 150 MG, UNK
     Route: 042
     Dates: start: 20070727, end: 20070802
  4. TICARCILLIN [Concomitant]
     Indication: SEPTIC SHOCK
     Dates: start: 20070803
  5. CIPROFLOXACIN [Concomitant]
     Indication: SEPTIC SHOCK
     Dosage: 600 MG, QD
     Dates: start: 20070802
  6. LINEZOLID [Concomitant]
     Indication: SEPTIC SHOCK
     Dosage: 1200 MG, QD
     Dates: start: 20070802
  7. NOREPINEPHRINE [Concomitant]
     Indication: HYPOTENSION
     Dosage: UNK, UNK
     Dates: start: 20070802
  8. POTASSIUM PHOSPHATE, DIBASIC [Concomitant]
     Indication: SEPTIC SHOCK
     Dosage: 2 A?G, UNK
     Dates: start: 20070803
  9. TIENAM [Concomitant]
     Indication: SEPTIC SHOCK
     Dosage: 1500 MG, QD
     Dates: start: 20070802
  10. HYDROCORTISONE [Concomitant]
     Indication: SEPTIC SHOCK
     Dates: start: 20070802
  11. ACYCLOVIR [Concomitant]
     Indication: DRUG USE FOR UNKNOWN INDICATION
     Dates: start: 20070810
  12. ASPIRIN [Concomitant]
     Indication: DRUG USE FOR UNKNOWN INDICATION
  13. PLAVIX [Concomitant]
     Indication: DRUG USE FOR UNKNOWN INDICATION
  14. NEXIUM [Concomitant]
     Indication: DRUG USE FOR UNKNOWN INDICATION
  15. TENORMIN [Concomitant]
     Indication: DRUG USE FOR UNKNOWN INDICATION
  16. SPIRIVA [Concomitant]
     Indication: DRUG USE FOR UNKNOWN INDICATION
     Dosage: UNK, UNK
     Dates: start: 20070601, end: 20070810
  17. XANAX [Concomitant]
     Indication: DRUG USE FOR UNKNOWN INDICATION
     Dates: end: 20070823

REACTIONS (2)
  - SEPTIC SHOCK [None]
  - STOMATITIS [None]
